FAERS Safety Report 7107418-7 (Version None)
Quarter: 2010Q4

REPORT INFORMATION
  Report Type: 
  Country: None (occurrence: None)
  Receive Date: 20101111
  Receipt Date: 20101111
  Transmission Date: 20110411
  Serious: Yes (Other)
  Sender: FDA-Public Use
  Company Number: None

PATIENT
  Age: 3 Month
  Sex: Female
  Weight: 6.3504 kg

DRUGS (1)
  1. HYLAND'S TEETHING TABLETS UNKNOWN HYLAND'S HOMEOPATHIC [Suspect]
     Indication: TEETHING
     Dosage: 1 TABLET 24 HRS PO
     Route: 048
     Dates: start: 20101025, end: 20101109

REACTIONS (3)
  - LETHARGY [None]
  - PRODUCT QUALITY ISSUE [None]
  - SOMNOLENCE [None]
